FAERS Safety Report 13715392 (Version 1)
Quarter: 2017Q3

REPORT INFORMATION
  Report Type: Report from Study
  Country: IE (occurrence: IE)
  Receive Date: 20170704
  Receipt Date: 20170704
  Transmission Date: 20171127
  Serious: Yes (Other)
  Sender: FDA-Public Use
  Company Number: PHFR2017IE005152

PATIENT
  Age: 54 Year
  Sex: Female

DRUGS (1)
  1. VOTRIENT [Suspect]
     Active Substance: PAZOPANIB HYDROCHLORIDE
     Indication: RENAL CELL CARCINOMA
     Dosage: 800 MG, UNK
     Route: 048
     Dates: start: 20170531

REACTIONS (2)
  - Wound decomposition [Not Recovered/Not Resolved]
  - Pain in extremity [Not Recovered/Not Resolved]

NARRATIVE: CASE EVENT DATE: 20170619
